FAERS Safety Report 5105897-8 (Version None)
Quarter: 2006Q3

REPORT INFORMATION
  Report Type: 
  Country: None (occurrence: None)
  Receive Date: 20060912
  Receipt Date: 20060824
  Transmission Date: 20061208
  Serious: Yes (Death)
  Sender: FDA-Public Use
  Company Number: US200608005140

PATIENT
  Age: 65 Year
  Sex: Male

DRUGS (4)
  1. XIGRIS [Suspect]
     Indication: KLEBSIELLA SEPSIS
     Dosage: INTRAVENOUS
     Route: 042
     Dates: start: 20060801
  2. VASOPRESSIN AND ANALOGUES [Concomitant]
  3. NEOSYNEPHRIN-POS (PHENYLEPHRINE HYDROCHLORIDE) [Concomitant]
  4. AMIODARONE (AMIODARONE) [Concomitant]

REACTIONS (1)
  - DEATH [None]
